FAERS Safety Report 8394227-4 (Version None)
Quarter: 2012Q1

REPORT INFORMATION
  Report Type: 
  Country: None (occurrence: None)
  Receive Date: 20120323
  Receipt Date: 20110803
  Transmission Date: 20120608
  Serious: Yes (Hospitalization, Disabling)
  Sender: FDA-Public Use
  Company Number: 163-21880-11050824

PATIENT
  Age: 69 Year
  Sex: Male

DRUGS (29)
  1. F.A. (FOLIC ACID) [Concomitant]
  2. LIPITOR [Concomitant]
  3. LORAZEPAM [Concomitant]
  4. NPH PURIFIED PORK ISOPHANE INSULIN [Concomitant]
  5. AMLODIPINE [Concomitant]
  6. LISINOPRIL [Concomitant]
  7. VITAMIN D [Concomitant]
  8. ASPIRIN [Concomitant]
  9. OXYCONTIN [Concomitant]
  10. VITAMIN B6 [Concomitant]
  11. FEXOFENADINE HCL (FEXOFENADINE HYDROCHLORIDE) [Concomitant]
  12. AMBIEN [Concomitant]
  13. TRAZODONE HCL [Concomitant]
  14. LEVEMIR (INSULIN DETERMIR) [Concomitant]
  15. COMPAZINE (PROCHLORERAZINE EDISYLATE) [Concomitant]
  16. REVLIMID [Suspect]
     Indication: MULTIPLE MYELOMA
     Dosage: 15 MG, QD DAYS 1-21 Q 28DAYS, PO
     Route: 048
     Dates: start: 20110406, end: 20110523
  17. FISH OIL (FISH OIL) [Concomitant]
  18. VELCADE [Concomitant]
  19. LEXPRO (ESCITALOPRAM OXALATE) [Concomitant]
  20. PLAVIX [Concomitant]
  21. PROBENECID [Concomitant]
  22. CIPRO [Concomitant]
  23. OXCODONE (OXYCODONE) [Concomitant]
  24. NOVOLOG [Concomitant]
  25. VITAMIN B1 TAB [Concomitant]
  26. CALCITRIOL [Concomitant]
  27. DECADRON [Concomitant]
  28. ANTIVERT [Concomitant]
  29. MIRTAZAPINE [Concomitant]

REACTIONS (5)
  - MUSCLE SPASMS [None]
  - MYALGIA [None]
  - CHILLS [None]
  - FATIGUE [None]
  - MUSCLE FATIGUE [None]
